FAERS Safety Report 7045217-5 (Version None)
Quarter: 2010Q3

REPORT INFORMATION
  Report Type: 
  Country: None (occurrence: None)
  Receive Date: 20100929
  Receipt Date: 20100628
  Transmission Date: 20110219
  Serious: No
  Sender: FDA-Public Use
  Company Number: US-WYE-H16449410

PATIENT
  Age: 66 Year
  Sex: Female
  Weight: 63.56 kg

DRUGS (7)
  1. PRISTIQ [Suspect]
     Indication: DEPRESSION
     Dosage: 50 MG 1X PER 1 DAY, ORAL
     Route: 048
     Dates: start: 20100501
  2. COENZYEM Q10 (COENZYME Q10) [Concomitant]
  3. CYTOMEL [Concomitant]
  4. ASCORBIC ACID [Concomitant]
  5. FISH (FISH OIL) [Concomitant]
  6. CALCIUM (CALCIUM) [Concomitant]
  7. VITAMIN D [Concomitant]

REACTIONS (2)
  - HEADACHE [None]
  - INSOMNIA [None]
